FAERS Safety Report 25090497 (Version 1)
Quarter: 2025Q1

REPORT INFORMATION
  Report Type: Spontaneous
  Country: US (occurrence: US)
  Receive Date: 20250318
  Receipt Date: 20250318
  Transmission Date: 20250409
  Serious: No
  Sender: PFIZER
  Company Number: US-PFIZER INC-202500025946

PATIENT
  Age: 58 Year
  Sex: Female

DRUGS (4)
  1. TUKYSA [Suspect]
     Active Substance: TUCATINIB
  2. TUKYSA [Suspect]
     Active Substance: TUCATINIB
     Dosage: TAKE 200MG TWICE DAILY
     Dates: start: 202502
  3. TUKYSA [Suspect]
     Active Substance: TUCATINIB
  4. HERCEPTIN [Concomitant]
     Active Substance: TRASTUZUMAB

REACTIONS (4)
  - Constipation [Unknown]
  - Blood calcium increased [Unknown]
  - Off label use [Unknown]
  - Product use issue [Unknown]
